FAERS Safety Report 5166340-6 (Version None)
Quarter: 2006Q4

REPORT INFORMATION
  Report Type: 
  Country: None (occurrence: None)
  Receive Date: 20061124
  Receipt Date: 20061115
  Transmission Date: 20070319
  Serious: Yes (Other)
  Sender: FDA-Public Use
  Company Number: 200410547BBE

PATIENT
  Sex: Female

DRUGS (16)
  1. HYPRHO-D [Suspect]
     Indication: PREGNANCY
  2. INJECTABLE GLOBULIN (IMMUNOGLOBULIN HUMAN NORMAL) [Suspect]
     Indication: PREGNANCY
  3. INJECTABLE GLOBULIN (IMMUNOGLOBULIN HUMAN NORMAL) [Suspect]
  4. INJECTABLE GLOBULIN (IMMUNOGLOBULINS) [Suspect]
  5. INJECTABLE GLOBULIN (IMMUNOGLOBULINS) [Suspect]
  6. INJECTABLE GLOBULIN (IMMUNOGLOBULINS) (IMMUNOGLOBULINS) [Suspect]
  7. INJECTABLE GLOBULIN (IMMUNOGLOBULINS) [Suspect]
  8. INJECTABLE GLOBULIN (IMMUNOGLOBULINS) [Suspect]
  9. INJECTABLE GLOBULIN (IMMUNOGLOBULIN HUMAN NORMAL) [Suspect]
  10. INJECTABLE GLOBULIN (IMMUNOGLOBULINS) [Suspect]
  11. INJECTABLE GLOBULIN (IMMUNOGLOBULIN HUMAN NORMAL) [Suspect]
  12. INJECTABLE GLOBULIN (IMMUNOGLOBULINS) [Suspect]
  13. INJECTABLE GLOBULIN (IMMUNOGLOBULINS) [Suspect]
  14. INJECTABLE GLOBULIN (IMMUNOGLOBULINS) [Suspect]
  15. INJECTABLE GLOBULIN (IMMUNOGLOBULINS) [Suspect]
  16. INJECTABLE GLOBULIN (IMMUNOGLOBULINS) [Suspect]

REACTIONS (2)
  - ADVERSE EVENT [None]
  - DRUG EXPOSURE DURING PREGNANCY [None]
